FAERS Safety Report 8108536-7 (Version None)
Quarter: 2012Q1

REPORT INFORMATION
  Report Type: 
  Country: None (occurrence: None)
  Receive Date: 20120202
  Receipt Date: 20120131
  Transmission Date: 20120608
  Serious: Yes (Death)
  Sender: FDA-Public Use
  Company Number: PHHY2011IN02992

PATIENT
  Age: 63 Year
  Sex: Male

DRUGS (1)
  1. ONBREZ [Suspect]
     Dosage: UNK
     Dates: start: 20110110

REACTIONS (2)
  - HAEMOPTYSIS [None]
  - DEATH [None]
